FAERS Safety Report 8268388-1 (Version None)
Quarter: 2012Q2

REPORT INFORMATION
  Report Type: 
  Country: None (occurrence: None)
  Receive Date: 20120409
  Receipt Date: 20120403
  Transmission Date: 20120825
  Serious: Yes (Other)
  Sender: FDA-Public Use
  Company Number: BR-JNJFOC-20120402056

PATIENT
  Age: 57 Year
  Sex: Female
  Weight: 35 kg

DRUGS (1)
  1. HALDOL [Suspect]
     Indication: SCHIZOPHRENIA
     Route: 065
     Dates: start: 20110901, end: 20111001

REACTIONS (2)
  - WEIGHT DECREASED [None]
  - ASTHENIA [None]
